FAERS Safety Report 20576855 (Version 2)
Quarter: 2022Q1

REPORT INFORMATION
  Report Type: Spontaneous
  Country: JP (occurrence: JP)
  Receive Date: 20220310
  Receipt Date: 20220315
  Transmission Date: 20220424
  Serious: No
  Sender: FDA-Public Use
  Company Number: JP-ASTELLAS-2022JP001371

PATIENT
  Age: 24 Year
  Sex: Female
  Weight: 46 kg

DRUGS (9)
  1. PROGRAF [Suspect]
     Active Substance: TACROLIMUS
     Indication: Lupus nephritis
     Route: 048
     Dates: start: 20140515
  2. PROGRAF [Suspect]
     Active Substance: TACROLIMUS
     Indication: Systemic lupus erythematosus
  3. PREDNISOLONE [Concomitant]
     Active Substance: PREDNISOLONE
     Indication: Lupus nephritis
     Route: 048
     Dates: start: 20140512
  4. PREDNISOLONE [Concomitant]
     Active Substance: PREDNISOLONE
     Indication: Systemic lupus erythematosus
  5. ADALAT [Concomitant]
     Active Substance: NIFEDIPINE
     Indication: Hypertension
     Route: 048
     Dates: start: 20140521, end: 20140814
  6. METHYLPREDNISOLONE [Concomitant]
     Active Substance: METHYLPREDNISOLONE
     Indication: Lupus nephritis
     Dosage: 1000MG/DAY, UNKNOWN FREQ.
     Route: 042
  7. METHYLPREDNISOLONE [Concomitant]
     Active Substance: METHYLPREDNISOLONE
     Dosage: 1000MG/DAY, UNKNOWN FREQ.
     Route: 042
  8. METHYLDOPA [Concomitant]
     Active Substance: METHYLDOPA
     Indication: Drug therapy
     Dosage: UNK UNK, UNKNOWN FREQ.
     Route: 065
  9. METHYLDOPA [Concomitant]
     Active Substance: METHYLDOPA
     Dosage: 2 G/DAY, UNKNOWN FREQ.
     Route: 065

REACTIONS (2)
  - Maternal exposure during pregnancy [Unknown]
  - Prescribed underdose [Unknown]

NARRATIVE: CASE EVENT DATE: 20140515
